FAERS Safety Report 24739979 (Version 1)
Quarter: 2024Q4

REPORT INFORMATION
  Report Type: Spontaneous
  Country: US (occurrence: US)
  Receive Date: 20241216
  Receipt Date: 20241216
  Transmission Date: 20250115
  Serious: No
  Sender: INCYTE
  Company Number: US-INCYTE CORPORATION-2024IN012672

PATIENT

DRUGS (1)
  1. OPZELURA [Suspect]
     Active Substance: RUXOLITINIB PHOSPHATE
     Dosage: APPLY A THIN LAYER TO AFFECTED AREA(S) ON UPPER BACK \T\ BILATERAL SHOULDERS TWICE DAILY
     Route: 065
     Dates: start: 202405

REACTIONS (1)
  - Ill-defined disorder [Unknown]
